FAERS Safety Report 9797890 (Version 3)
Quarter: 2014Q2

REPORT INFORMATION
  Report Type: Spontaneous
  Country: CN (occurrence: CN)
  Receive Date: 20140106
  Receipt Date: 20140516
  Transmission Date: 20141212
  Serious: Yes (Other)
  Sender: FDA-Public Use
  Company Number: PHHY2013CN153716

PATIENT
  Sex: Female

DRUGS (2)
  1. ACLASTA [Suspect]
     Route: 042
  2. ACE INHIBITORS [Concomitant]
     Indication: HYPERTENSION

REACTIONS (10)
  - Renal failure acute [Recovered/Resolved]
  - Urine output decreased [Unknown]
  - Infection [Unknown]
  - Fluid intake reduced [Unknown]
  - Haemoglobin decreased [Unknown]
  - Blood pressure systolic increased [Unknown]
  - Vomiting [Unknown]
  - Nausea [Unknown]
  - Pyrexia [Unknown]
  - Dehydration [Unknown]
